FAERS Safety Report 17273520 (Version 1)
Quarter: 2020Q1

REPORT INFORMATION
  Report Type: Spontaneous
  Country: US (occurrence: US)
  Receive Date: 20191224
  Receipt Date: 20191224
  Transmission Date: 20200409
  Serious: Yes (Hospitalization)
  Sender: FDA-Public Use
  Company Number: None

PATIENT
  Sex: Male
  Weight: 11.8 kg

DRUGS (3)
  1. DEXRAZOXANE. [Concomitant]
     Active Substance: DEXRAZOXANE
  2. CISPLATIN. [Suspect]
     Active Substance: CISPLATIN
  3. DOZORUBICIN HYDROCHLORIDE [Concomitant]

REACTIONS (2)
  - Hypophagia [None]
  - Anuria [None]

NARRATIVE: CASE EVENT DATE: 20191217
